FAERS Safety Report 17643124 (Version 1)
Quarter: 2020Q2

REPORT INFORMATION
  Report Type: Spontaneous
  Country: DE (occurrence: DE)
  Receive Date: 20200408
  Receipt Date: 20200408
  Transmission Date: 20200713
  Serious: Yes (Hospitalization, Other)
  Sender: FDA-Public Use
  Company Number: DE-DRREDDYS-USA/GER/12/0024201

PATIENT
  Age: 77 Year
  Sex: Female

DRUGS (1)
  1. IBUPROFEN. [Suspect]
     Active Substance: IBUPROFEN
     Indication: HEADACHE
     Route: 048

REACTIONS (5)
  - Jejunal ulcer [Recovering/Resolving]
  - Anaemia [Recovering/Resolving]
  - Diverticulum intestinal [Recovering/Resolving]
  - Intestinal ischaemia [Recovered/Resolved]
  - Gastrointestinal haemorrhage [Recovered/Resolved]
